FAERS Safety Report 14270889 (Version 1)
Quarter: 2017Q4

REPORT INFORMATION
  Report Type: Spontaneous
  Country: CH (occurrence: CH)
  Receive Date: 20171211
  Receipt Date: 20171211
  Transmission Date: 20180321
  Serious: Yes (Hospitalization)
  Sender: FDA-Public Use
  Company Number: CH-OTSUKA-2016_024356

PATIENT
  Age: 68 Year
  Sex: Female

DRUGS (7)
  1. INDERAL [Suspect]
     Active Substance: PROPRANOLOL HYDROCHLORIDE
     Indication: DEREALISATION
     Dosage: 20 MG, UNK
     Route: 048
     Dates: start: 20151209, end: 20151228
  2. ABILIFY [Suspect]
     Active Substance: ARIPIPRAZOLE
     Indication: DEREALISATION
     Dosage: 5 MG, QD
     Route: 048
     Dates: start: 20151207, end: 20151211
  3. ABILIFY [Suspect]
     Active Substance: ARIPIPRAZOLE
     Dosage: 5 MG, QD
     Route: 048
     Dates: start: 20151229, end: 20160119
  4. SAROTEN [Suspect]
     Active Substance: AMITRIPTYLINE
     Dosage: 50 MG, UNK
     Route: 048
     Dates: start: 20151220, end: 20151228
  5. ABILIFY [Suspect]
     Active Substance: ARIPIPRAZOLE
     Dosage: 10 MG, UNK
     Route: 048
     Dates: start: 20151212, end: 20151228
  6. SAROTEN [Suspect]
     Active Substance: AMITRIPTYLINE
     Indication: DEREALISATION
     Dosage: 25 MG, UNK
     Route: 048
     Dates: start: 20151211, end: 20151216
  7. SAROTEN [Suspect]
     Active Substance: AMITRIPTYLINE
     Dosage: 25 MG, UNK
     Route: 048
     Dates: start: 20151229, end: 20160111

REACTIONS (5)
  - Gait disturbance [Recovered/Resolved]
  - Musculoskeletal stiffness [Recovered/Resolved]
  - Product use in unapproved indication [Unknown]
  - Limb discomfort [Recovered/Resolved]
  - Restlessness [Recovered/Resolved]

NARRATIVE: CASE EVENT DATE: 20151228
